FAERS Safety Report 10481756 (Version 1)
Quarter: 2014Q3

REPORT INFORMATION
  Report Type: Spontaneous
  Country: US (occurrence: None)
  Receive Date: 20140908
  Receipt Date: 20140908
  Transmission Date: 20150326
  Serious: Yes (Other)
  Sender: FDA-Public Use
  Company Number: 391000

PATIENT
  Age: 83 Year
  Sex: Female
  Weight: 85.3 kg

DRUGS (1)
  1. VICTOZA [Suspect]
     Active Substance: LIRAGLUTIDE
     Indication: TYPE 2 DIABETES MELLITUS
     Route: 058
     Dates: start: 2012, end: 201301

REACTIONS (3)
  - Pancreatitis [None]
  - Pulmonary mass [None]
  - Thyroid neoplasm [None]

NARRATIVE: CASE EVENT DATE: 201301
